FAERS Safety Report 8176688-9 (Version None)
Quarter: 2012Q1

REPORT INFORMATION
  Report Type: 
  Country: None (occurrence: None)
  Receive Date: 20120228
  Receipt Date: 20120210
  Transmission Date: 20120608
  Serious: Yes (Other)
  Sender: FDA-Public Use
  Company Number: JPI-P-019781

PATIENT
  Age: 62 Year
  Sex: Male

DRUGS (2)
  1. XYREM [Suspect]
     Indication: SLEEP DISORDER
     Dosage: ORAL
     Route: 048
     Dates: end: 20120201
  2. MULTIPLE UNSPECIFIED DRUGS [Concomitant]

REACTIONS (2)
  - HEPATIC ENZYME INCREASED [None]
  - ASCITES [None]
